FAERS Safety Report 5093052-X (Version None)
Quarter: 2006Q3

REPORT INFORMATION
  Report Type: 
  Country: None (occurrence: None)
  Receive Date: 20060726
  Receipt Date: 19940523
  Transmission Date: 20061208
  Serious: Yes (Other)
  Sender: FDA-Public Use
  Company Number: 940116

PATIENT
  Age: 81 Year
  Sex: Female
  Weight: 57 kg

DRUGS (1)
  1. MS CONTIN [Suspect]
     Indication: PROCEDURAL PAIN
     Dosage: 60 MG, Q6H, ORAL
     Route: 048
     Dates: start: 19940318, end: 19940318

REACTIONS (5)
  - HYPERHIDROSIS [None]
  - HYPOTENSION [None]
  - OVERDOSE [None]
  - PALLOR [None]
  - RESPIRATORY DEPRESSION [None]
